FAERS Safety Report 19891325 (Version 3)
Quarter: 2021Q4

REPORT INFORMATION
  Report Type: Report from Study
  Country: CA (occurrence: CA)
  Receive Date: 20210928
  Receipt Date: 20211008
  Transmission Date: 20220303
  Serious: Yes (Hospitalization)
  Sender: FDA-Public Use
  Company Number: CA-ROCHE-2849950

PATIENT
  Age: 55 Year
  Sex: Male
  Weight: 78 kg

DRUGS (28)
  1. OCRELIZUMAB [Suspect]
     Active Substance: OCRELIZUMAB
     Indication: Primary progressive multiple sclerosis
     Dosage: SUBSEQUENT DOSES OF BLINDED OCRELIZUMAB RECEIVED ON 28/MAY/2012, 31/OCT/2012, 16/NOV/2012, 26/APR/20
     Route: 042
     Dates: start: 20120516
  2. OCRELIZUMAB [Suspect]
     Active Substance: OCRELIZUMAB
     Indication: Primary progressive multiple sclerosis
     Dosage: SUBSEQUENT DOSES OF OPEN OCRELIZUMAB RECEIVED ON 05/FEB//2016, 08/JUL/2016, 22/JUL/2016, 10/MAY/2018
     Route: 042
     Dates: start: 20160122
  3. OCRELIZUMAB [Suspect]
     Active Substance: OCRELIZUMAB
     Dosage: SUBSEQUENT DOSES OF OPEN OCRELIZUMAB RECEIVED ON  04/APR/2019, 12/MAR/2020
     Route: 042
     Dates: start: 20181025
  4. OCRELIZUMAB [Suspect]
     Active Substance: OCRELIZUMAB
     Dosage: SUBSEQUENT DOSES OF OPEN OCRELIZUMAB RECEIVED ON 24/NOV/2017, 26/SEP/2019, 05/MAR/2021
     Route: 042
     Dates: start: 20170623
  5. ACETAMINOPHEN [Concomitant]
     Active Substance: ACETAMINOPHEN
     Dosage: SUBSEQUENT DOSES OF ACETAMINOPHEN RECEIVED ON 28/MAY/2012, 31/OCT/2012, 16/NOV/2012, 26/APR/2013, 10
     Dates: start: 20120516
  6. ACETAMINOPHEN [Concomitant]
     Active Substance: ACETAMINOPHEN
     Dates: start: 20210502, end: 20210531
  7. ACETAMINOPHEN [Concomitant]
     Active Substance: ACETAMINOPHEN
     Dates: start: 20141009, end: 20141017
  8. BACLOFEN [Concomitant]
     Active Substance: BACLOFEN
     Indication: Multiple sclerosis
     Dates: start: 20180511, end: 20180517
  9. BACLOFEN [Concomitant]
     Active Substance: BACLOFEN
     Indication: Muscle spasticity
     Dates: start: 20180518, end: 20180521
  10. BACLOFEN [Concomitant]
     Active Substance: BACLOFEN
     Dates: start: 20190927
  11. BETAHISTINE [Concomitant]
     Active Substance: BETAHISTINE
     Indication: Asthenia
     Dates: start: 20150115, end: 20150115
  12. BETAHISTINE [Concomitant]
     Active Substance: BETAHISTINE
     Indication: Vertigo
     Dates: start: 20150116, end: 20150118
  13. BETAHISTINE [Concomitant]
     Active Substance: BETAHISTINE
     Dates: start: 20160218, end: 20160218
  14. BETAHISTINE [Concomitant]
     Active Substance: BETAHISTINE
     Dates: start: 20170531
  15. CITALOPRAM HYDROBROMIDE [Concomitant]
     Active Substance: CITALOPRAM HYDROBROMIDE
     Indication: Depression
     Dates: start: 20171125, end: 20171201
  16. CITALOPRAM HYDROBROMIDE [Concomitant]
     Active Substance: CITALOPRAM HYDROBROMIDE
     Dates: start: 20171202, end: 20180814
  17. CITALOPRAM HYDROBROMIDE [Concomitant]
     Active Substance: CITALOPRAM HYDROBROMIDE
     Dates: start: 20181109, end: 20181115
  18. CITALOPRAM HYDROBROMIDE [Concomitant]
     Active Substance: CITALOPRAM HYDROBROMIDE
     Dates: start: 20181116
  19. DALTEPARIN [Concomitant]
     Active Substance: DALTEPARIN
     Dosage: 5000 OTHER, UNITS
     Dates: start: 20210502
  20. DEXAMETHASONE [Concomitant]
     Active Substance: DEXAMETHASONE
     Indication: Pneumonia aspiration
     Dates: start: 20210514
  21. LEVOFLOXACIN [Concomitant]
     Active Substance: LEVOFLOXACIN
     Indication: Pneumonia aspiration
     Dates: start: 20210514
  22. PANTOPRAZOLE [Concomitant]
     Active Substance: PANTOPRAZOLE
     Indication: Pneumonia aspiration
     Dates: start: 20210514
  23. PIPERACILLIN SODIUM\TAZOBACTAM SODIUM [Concomitant]
     Active Substance: PIPERACILLIN SODIUM\TAZOBACTAM SODIUM
     Dates: start: 20210501, end: 20210501
  24. PIPERACILLIN SODIUM\TAZOBACTAM SODIUM [Concomitant]
     Active Substance: PIPERACILLIN SODIUM\TAZOBACTAM SODIUM
     Dates: start: 20210502, end: 20210503
  25. VANCOMYCIN [Concomitant]
     Active Substance: VANCOMYCIN
     Dates: start: 20210501, end: 20210501
  26. DIPHENHYDRAMINE [Concomitant]
     Active Substance: DIPHENHYDRAMINE
     Dosage: SUBSEQUENT DOSES OF ACETAMINOPHEN RECEIVED ON 28/MAY/2012, 31/OCT/2012, 16/NOV/2012, 26/APR/2013, 10
     Dates: start: 20120516
  27. BENADRYL [Concomitant]
     Active Substance: DIPHENHYDRAMINE HYDROCHLORIDE
     Dates: start: 20180510
  28. METHYLPREDNISOLONE [Concomitant]
     Active Substance: METHYLPREDNISOLONE
     Dosage: SUBSEQUENT DOSES OF METHYLPREDNISOLONE RECEIVED ON 28/MAY/2012, 31/OCT/2012, 16/NOV/2012, 26/APR/201
     Dates: start: 20120516

REACTIONS (1)
  - Sepsis [Recovered/Resolved]

NARRATIVE: CASE EVENT DATE: 20210529
